FAERS Safety Report 10429313 (Version 1)
Quarter: 2014Q3

REPORT INFORMATION
  Report Type: Spontaneous
  Country: US (occurrence: None)
  Receive Date: 20140725
  Receipt Date: 20140725
  Transmission Date: 20150326
  Serious: Yes (Other)
  Sender: FDA-Public Use
  Company Number: 163-50794-13080330

PATIENT
  Age: 76 Year
  Sex: Female
  Weight: 67.13 kg

DRUGS (19)
  1. OMEPRAZOLE (OMEPRAZOLE) [Concomitant]
     Active Substance: OMEPRAZOLE
  2. ZOCOR [Concomitant]
     Active Substance: SIMVASTATIN
  3. NORCO (VICODIN) [Concomitant]
  4. MULTIVITAMINS (MULTIVITAMINS) [Concomitant]
     Active Substance: VITAMINS
  5. FENTANYL (FENTANYL) [Concomitant]
     Active Substance: FENTANYL
  6. CALCIUM CARBONATE- VITAMIN D (LEKOVIT CA) [Concomitant]
  7. VIDAZA [Suspect]
     Active Substance: AZACITIDINE
     Indication: MYELODYSPLASTIC SYNDROME
     Dates: start: 20120730, end: 20121217
  8. LEVOTHYROXINE (LEVOTHYROXINE) [Concomitant]
     Active Substance: LEVOTHYROXINE
  9. MORPHINE SULFATE (MORPHINE SULFATE) [Concomitant]
  10. FUROSEMIDE (FUROSEMIDE) [Concomitant]
     Active Substance: FUROSEMIDE
  11. PREDNISONE (PREDNISONE) [Concomitant]
     Active Substance: PREDNISONE
  12. PRILOSEC (OMEPRAZOLE) [Concomitant]
     Active Substance: OMEPRAZOLE MAGNESIUM
  13. FLUTICASONE [Concomitant]
     Active Substance: FLUTICASONE\FLUTICASONE PROPIONATE
  14. LASIX [Concomitant]
     Active Substance: FUROSEMIDE
  15. PLAVIX [Concomitant]
     Active Substance: CLOPIDOGREL BISULFATE
  16. ADVAIR DISKUS [Concomitant]
     Active Substance: FLUTICASONE PROPIONATE\SALMETEROL XINAFOATE
  17. ACETAMINOPHEN (ACETAMINOPHEN) [Concomitant]
     Active Substance: ACETAMINOPHEN
  18. SIMVASTATIN (SIMVASTATIN) [Concomitant]
     Active Substance: SIMVASTATIN
  19. POTASSIUM CHLORIDE (POTASSIUM CHLORIDE) [Concomitant]
     Active Substance: POTASSIUM CHLORIDE

REACTIONS (2)
  - Meningitis bacterial [None]
  - Treatment failure [None]

NARRATIVE: CASE EVENT DATE: 20130115
